FAERS Safety Report 14227910 (Version 1)
Quarter: 2017Q4

REPORT INFORMATION
  Report Type: Spontaneous
  Country: ZA (occurrence: ZA)
  Receive Date: 20171127
  Receipt Date: 20171127
  Transmission Date: 20180321
  Serious: No
  Sender: FDA-Public Use
  Company Number: ZA-SA-2017SA225709

PATIENT

DRUGS (4)
  1. METHOTREXATE. [Suspect]
     Active Substance: METHOTREXATE
     Route: 058
     Dates: start: 2010, end: 2011
  2. CHLOROQUINE. [Suspect]
     Active Substance: CHLOROQUINE
     Route: 048
     Dates: start: 2010, end: 2011
  3. ARAVA [Suspect]
     Active Substance: LEFLUNOMIDE
     Route: 048
     Dates: start: 2011, end: 2013
  4. SALAZOPYRIN [Suspect]
     Active Substance: SULFASALAZINE
     Route: 065
     Dates: start: 2010, end: 2011

REACTIONS (2)
  - Paternal exposure timing unspecified [Unknown]
  - Drug ineffective [Unknown]
